FAERS Safety Report 25811230 (Version 1)
Quarter: 2025Q3

REPORT INFORMATION
  Report Type: Spontaneous
  Country: BB (occurrence: BB)
  Receive Date: 20250917
  Receipt Date: 20250917
  Transmission Date: 20251021
  Serious: Yes (Other)
  Sender: JOHNSON AND JOHNSON
  Company Number: BB-BAYER-2025A122003

PATIENT
  Age: 69 Year
  Sex: Male

DRUGS (1)
  1. RIVAROXABAN [Suspect]
     Active Substance: RIVAROXABAN
     Indication: Deep vein thrombosis
     Route: 048
     Dates: start: 2019

REACTIONS (6)
  - Prostate cancer [Unknown]
  - Deep vein thrombosis [Unknown]
  - Peripheral venous disease [Unknown]
  - Diabetes mellitus [Unknown]
  - Peripheral swelling [Unknown]
  - Hypertension [Unknown]

NARRATIVE: CASE EVENT DATE: 20250101
